FAERS Safety Report 4660316-0 (Version None)
Quarter: 2005Q2

REPORT INFORMATION
  Report Type: 
  Country: None (occurrence: None)
  Receive Date: 20050512
  Receipt Date: 20050427
  Transmission Date: 20051028
  Serious: Yes (Death)
  Sender: FDA-Public Use
  Company Number: CA-MERCK-0504CAN00174

PATIENT

DRUGS (3)
  1. ZETIA [Suspect]
     Route: 048
     Dates: start: 20040401
  2. DESLORATADINE [Suspect]
     Route: 048
  3. MOMETASONE FUROATE [Suspect]
     Route: 065

REACTIONS (1)
  - DEATH [None]
